FAERS Safety Report 8281039-5 (Version None)
Quarter: 2012Q2

REPORT INFORMATION
  Report Type: 
  Country: None (occurrence: None)
  Receive Date: 20120412
  Receipt Date: 20120330
  Transmission Date: 20120825
  Serious: Yes (Other)
  Sender: FDA-Public Use
  Company Number: AU-MYLANLABS-2012S1006810

PATIENT
  Age: 58 Year
  Sex: Female

DRUGS (8)
  1. XANAX [Concomitant]
     Indication: INSOMNIA
  2. SCOPOLAMINE [Concomitant]
  3. CIMETIDINE [Concomitant]
  4. MORPHINE SULFATE [Concomitant]
  5. DOXEPIN HCL [Suspect]
     Indication: DEPRESSION
     Dates: start: 20120311, end: 20120329
  6. DEXAMPHETAMINE [Concomitant]
     Indication: ATTENTION DEFICIT/HYPERACTIVITY DISORDER
  7. METFORMIN HCL [Concomitant]
     Indication: DIABETES MELLITUS
     Route: 048
  8. PANTOPRAZOLE [Concomitant]

REACTIONS (6)
  - INTENTIONAL SELF-INJURY [None]
  - MOOD ALTERED [None]
  - DEPRESSION [None]
  - SELF-INJURIOUS IDEATION [None]
  - SUICIDAL IDEATION [None]
  - PALPITATIONS [None]
